FAERS Safety Report 18577760 (Version 1)
Quarter: 2020Q4

REPORT INFORMATION
  Report Type: Spontaneous
  Country: US (occurrence: US)
  Receive Date: 20201204
  Receipt Date: 20201204
  Transmission Date: 20210114
  Serious: No
  Sender: FDA-Public Use
  Company Number: US-SUN PHARMACEUTICAL INDUSTRIES LTD-2020R1-265213

PATIENT
  Age: 60 Year
  Sex: Female

DRUGS (1)
  1. CEQUA [Suspect]
     Active Substance: CYCLOSPORINE
     Indication: BLEPHARITIS
     Dosage: UNK DROP, BID(IN BOTH EYES)
     Route: 047
     Dates: start: 202006, end: 20201015

REACTIONS (1)
  - Rash [Unknown]

NARRATIVE: CASE EVENT DATE: 202009
